FAERS Safety Report 9212753 (Version 2)
Quarter: 2013Q2

REPORT INFORMATION
  Report Type: Report from Study
  Country: GB (occurrence: US)
  Receive Date: 20130405
  Receipt Date: 20130514
  Transmission Date: 20140414
  Serious: Yes (Hospitalization)
  Sender: FDA-Public Use
  Company Number: GB-009507513-1302GBR003964

PATIENT
  Age: 72 Year
  Sex: Female
  Weight: 74 kg

DRUGS (13)
  1. MK-3034 [Suspect]
     Indication: CHRONIC HEPATITIS C
     Dosage: UNK UNK, TID
     Route: 048
     Dates: start: 20120822, end: 20121103
  2. PEGINTERFERON ALFA-2A [Suspect]
     Indication: CHRONIC HEPATITIS C
     Dosage: 180 MICROGRAM, FREQUENCY REPORTED: QS
     Route: 058
     Dates: start: 20120822, end: 20121103
  3. REBETOL [Suspect]
     Indication: CHRONIC HEPATITIS C
     Dosage: 1 G, QD
     Route: 048
     Dates: start: 20120822, end: 20121103
  4. LEVOXYL [Concomitant]
     Indication: HYPOTHYROIDISM
     Dosage: 0.25 MG, QD
     Dates: start: 2011
  5. LOSARTAN POTASSIUM TABLETS [Concomitant]
     Indication: HYPERTENSION
     Dosage: UNK
     Dates: start: 2011
  6. ATENOLOL [Concomitant]
     Indication: HYPERTENSION
     Dosage: UNK
     Dates: start: 20120921, end: 20121021
  7. FERROUS SULFATE [Concomitant]
     Indication: ANAEMIA
     Dosage: 325 MG, QD
     Dates: start: 20120926
  8. FOLIC ACID [Concomitant]
     Indication: ANAEMIA
     Dosage: 1 MG, QD
     Dates: start: 20120926
  9. ZANTAC [Concomitant]
     Indication: GASTROOESOPHAGEAL REFLUX DISEASE
     Dosage: 150 MG, AS REQUIRED
     Dates: start: 2010
  10. TORADOL [Concomitant]
     Indication: TORTICOLLIS
     Dosage: UNK
     Dates: start: 20121111, end: 20121111
  11. PREDNISONE [Concomitant]
     Indication: TORTICOLLIS
     Dosage: 20 MG, UNK
     Dates: start: 20121126, end: 20121130
  12. PREDNISONE [Concomitant]
     Dosage: 5 MG, Q6H
     Dates: start: 20121201, end: 20121206
  13. ACETAMINOPHEN (+) IBUPROFEN [Concomitant]
     Indication: TORTICOLLIS
     Dosage: 650 MG, UNK
     Dates: start: 20121218, end: 20121222

REACTIONS (1)
  - Anaemia [Recovered/Resolved]
